FAERS Safety Report 7352506-3 (Version None)
Quarter: 2011Q1

REPORT INFORMATION
  Report Type: 
  Country: None (occurrence: None)
  Receive Date: 20110315
  Receipt Date: 20110311
  Transmission Date: 20110831
  Serious: Yes (Other)
  Sender: FDA-Public Use
  Company Number: CL-PFIZER INC-2011054128

PATIENT
  Age: 6 Year
  Sex: Male

DRUGS (4)
  1. SOLU-CORTEF [Suspect]
     Indication: ASTHMATIC CRISIS
     Dosage: 100 MG, UNK
     Dates: start: 20110308, end: 20110311
  2. SALBUTAMOL [Concomitant]
     Dosage: UNK
     Dates: start: 20110308
  3. SOLU-CORTEF [Suspect]
     Indication: OBSTRUCTION
  4. ACETAMINOPHEN [Concomitant]
     Dosage: UNK

REACTIONS (4)
  - RASH [None]
  - ERYTHEMA [None]
  - TACHYCARDIA [None]
  - DYSPNOEA [None]
